FAERS Safety Report 6695900-6 (Version None)
Quarter: 2010Q2

REPORT INFORMATION
  Report Type: 
  Country: None (occurrence: None)
  Receive Date: 20100426
  Receipt Date: 20091204
  Transmission Date: 20101027
  Serious: No
  Sender: FDA-Public Use
  Company Number: A0833629A

PATIENT
  Sex: Female

DRUGS (2)
  1. ZOFRAN [Suspect]
     Indication: PROPHYLAXIS OF NAUSEA AND VOMITING
     Route: 048
     Dates: start: 20091201
  2. ADVAIR DISKUS 100/50 [Concomitant]

REACTIONS (3)
  - DRUG ADMINISTRATION ERROR [None]
  - NAUSEA [None]
  - RETCHING [None]
